FAERS Safety Report 7270171-0 (Version None)
Quarter: 2011Q1

REPORT INFORMATION
  Report Type: 
  Country: None (occurrence: None)
  Receive Date: 20110125
  Receipt Date: 20110125
  Transmission Date: 20110831
  Serious: No
  Sender: FDA-Public Use
  Company Number: None

PATIENT
  Weight: 52.1637 kg

DRUGS (1)
  1. AMNESTEEM [Suspect]
     Indication: ACNE
     Dosage: 1 CAPSULE IN THE AM 6 MONTHS
     Dates: start: 20061001, end: 20070401

REACTIONS (1)
  - IRRITABLE BOWEL SYNDROME [None]
